FAERS Safety Report 8369115-X (Version None)
Quarter: 2012Q2

REPORT INFORMATION
  Report Type: 
  Country: None (occurrence: None)
  Receive Date: 20120518
  Receipt Date: 20120507
  Transmission Date: 20120825
  Serious: Yes (Hospitalization)
  Sender: FDA-Public Use
  Company Number: CA-JNJFOC-20120507297

PATIENT
  Sex: Male
  Weight: 102.3 kg

DRUGS (2)
  1. REMICADE [Suspect]
     Indication: CROHN'S DISEASE
     Route: 042
     Dates: start: 20100713
  2. VITAMINS NOS [Concomitant]
     Route: 065

REACTIONS (4)
  - PYREXIA [None]
  - DIARRHOEA [None]
  - MUSCLE SPASMS [None]
  - DEHYDRATION [None]
